FAERS Safety Report 24084148 (Version 1)
Quarter: 2024Q3

REPORT INFORMATION
  Report Type: Spontaneous
  Country: JP (occurrence: JP)
  Receive Date: 20240712
  Receipt Date: 20240712
  Transmission Date: 20241017
  Serious: Yes (Death, Other)
  Sender: BOEHRINGER INGELHEIM
  Company Number: JP-BoehringerIngelheim-2024-BI-038942

PATIENT
  Age: 26 Year
  Sex: Female

DRUGS (9)
  1. AFATINIB [Suspect]
     Active Substance: AFATINIB
     Indication: Lung adenocarcinoma stage IV
  2. AFATINIB [Suspect]
     Active Substance: AFATINIB
     Indication: EGFR gene mutation
  3. CISPLATIN [Concomitant]
     Active Substance: CISPLATIN
     Indication: Product used for unknown indication
  4. pemetrexed (PEM) [Concomitant]
     Indication: Product used for unknown indication
  5. BEVACIZUMAB [Concomitant]
     Active Substance: BEVACIZUMAB
     Indication: Product used for unknown indication
  6. docetaxel (DTX) [Concomitant]
     Indication: Product used for unknown indication
  7. ramucirumab (RAM) [Concomitant]
     Indication: Product used for unknown indication
  8. tegafur-gimeracil-oteracil potassium (S-1) [Concomitant]
     Indication: Product used for unknown indication
  9. GEMCITABINE [Concomitant]
     Active Substance: GEMCITABINE
     Indication: Product used for unknown indication

REACTIONS (6)
  - Death [Fatal]
  - Malignant neoplasm progression [Unknown]
  - Pleural effusion [Unknown]
  - EGFR gene mutation [Unknown]
  - Small cell lung cancer [Unknown]
  - Drug ineffective [Unknown]
